FAERS Safety Report 15919565 (Version 1)
Quarter: 2019Q1

REPORT INFORMATION
  Report Type: Spontaneous
  Country: US (occurrence: US)
  Receive Date: 20190205
  Receipt Date: 20190205
  Transmission Date: 20190417
  Serious: No
  Sender: FDA-Public Use
  Company Number: US-ROCHE-2096894

PATIENT
  Age: 75 Year
  Sex: Male
  Weight: 82.63 kg

DRUGS (6)
  1. FINASTERIDE. [Concomitant]
     Active Substance: FINASTERIDE
  2. BYSTOLIC [Concomitant]
     Active Substance: NEBIVOLOL HYDROCHLORIDE
  3. HCTZ [Concomitant]
     Active Substance: HYDROCHLOROTHIAZIDE
  4. XOLAIR [Suspect]
     Active Substance: OMALIZUMAB
     Indication: URTICARIA
     Route: 058
     Dates: start: 201607, end: 201612
  5. ASA [Concomitant]
     Active Substance: ASPIRIN
  6. DIOVAN [Concomitant]
     Active Substance: VALSARTAN

REACTIONS (1)
  - Local reaction [Recovered/Resolved]

NARRATIVE: CASE EVENT DATE: 201608
